FAERS Safety Report 6382125-7 (Version None)
Quarter: 2009Q3

REPORT INFORMATION
  Report Type: 
  Country: None (occurrence: None)
  Receive Date: 20090930
  Receipt Date: 20090925
  Transmission Date: 20100115
  Serious: Yes (Life-Threatening, Hospitalization, Other)
  Sender: FDA-Public Use
  Company Number: PHHY2009CA32386

PATIENT
  Sex: Female

DRUGS (7)
  1. SANDOSTATIN LAR [Suspect]
     Indication: INTESTINAL OBSTRUCTION
     Dosage: 10 MG, QMO
     Route: 030
     Dates: start: 20090702
  2. SANDOSTATIN LAR [Suspect]
     Dosage: 20 MG, QMO
     Route: 030
  3. SANDOSTATIN [Suspect]
     Indication: INTESTINAL OBSTRUCTION
     Dosage: UNK
     Route: 058
     Dates: start: 20090624, end: 20090706
  4. MS CONTIN [Concomitant]
     Dosage: 45 MG, BID
     Route: 048
  5. KEPRA [Concomitant]
     Dosage: 1000 MG, BID
     Route: 048
  6. ANTIEPILEPTICS [Concomitant]
     Dosage: 1 DF, BID
     Route: 065
  7. MORPHINE [Concomitant]
     Route: 065

REACTIONS (16)
  - ABDOMINAL PAIN UPPER [None]
  - ANXIETY [None]
  - ASTHENIA [None]
  - CHEST DISCOMFORT [None]
  - DIARRHOEA [None]
  - DIZZINESS [None]
  - DYSPNOEA [None]
  - FEELING ABNORMAL [None]
  - FEELING COLD [None]
  - HEADACHE [None]
  - HEPATIC ENZYME INCREASED [None]
  - PARAESTHESIA [None]
  - SOMNOLENCE [None]
  - SPHINCTER OF ODDI DYSFUNCTION [None]
  - VITAL FUNCTIONS ABNORMAL [None]
  - WITHDRAWAL SYNDROME [None]
